FAERS Safety Report 8369997-1 (Version None)
Quarter: 2012Q2

REPORT INFORMATION
  Report Type: 
  Country: None (occurrence: None)
  Receive Date: 20120518
  Receipt Date: 20120509
  Transmission Date: 20120825
  Serious: Yes (Death, Hospitalization)
  Sender: FDA-Public Use
  Company Number: GB-VERTEX PHARMACEUTICALS INC.-000000000000000572

PATIENT
  Sex: Male
  Weight: 68 kg

DRUGS (7)
  1. INCIVO [Suspect]
     Indication: HEPATITIS C
     Dosage: DOSAGE FORM: TABLET
     Route: 048
     Dates: start: 20120418, end: 20120421
  2. PEGASYS [Concomitant]
     Indication: HEPATITIS C
     Dosage: DOSAGE FORM: UNSPECIFIED
     Route: 058
     Dates: start: 20120418, end: 20120421
  3. DIAZEPAM [Concomitant]
     Indication: ANXIETY
     Route: 048
     Dates: end: 20120421
  4. BECLOMETHASONE DIPROPIONATE [Concomitant]
     Indication: ASTHMA
     Dates: end: 20120421
  5. RIBAVIRIN [Concomitant]
     Indication: HEPATITIS C
     Dosage: DOSAGE FORM: UNSPECIFIED
     Route: 065
     Dates: start: 20120418, end: 20120421
  6. PRILOSEC [Concomitant]
     Route: 048
     Dates: end: 20120421
  7. ALBUTEROL [Concomitant]
     Indication: ASTHMA
     Dates: end: 20120421

REACTIONS (2)
  - CARDIAC ARREST [None]
  - CRANIOCEREBRAL INJURY [None]
